FAERS Safety Report 16171847 (Version 2)
Quarter: 2019Q2

REPORT INFORMATION
  Report Type: Spontaneous
  Country: US (occurrence: US)
  Receive Date: 20190408
  Receipt Date: 20190419
  Transmission Date: 20190711
  Serious: Yes (Hospitalization)
  Sender: FDA-Public Use
  Company Number: US-TEVA-2019-US-1033457

PATIENT
  Age: 54 Year
  Sex: Male

DRUGS (1)
  1. WARFARIN SODIUM TABLETS, USP TEVA [Suspect]
     Active Substance: WARFARIN SODIUM
     Indication: CARDIAC VALVE DISEASE
     Route: 065
     Dates: start: 20170503

REACTIONS (10)
  - Neck pain [Recovered/Resolved]
  - Arteritis [Recovered/Resolved]
  - Abdominal pain upper [Recovered/Resolved]
  - Poor peripheral circulation [Recovered/Resolved]
  - Feeling abnormal [Recovered/Resolved]
  - Headache [Recovered/Resolved]
  - Renal pain [Not Recovered/Not Resolved]
  - International normalised ratio increased [Recovered/Resolved]
  - Toxicity to various agents [Recovered/Resolved]
  - Blood urine present [Recovered/Resolved]

NARRATIVE: CASE EVENT DATE: 20170503
